FAERS Safety Report 6826264-2 (Version None)
Quarter: 2010Q3

REPORT INFORMATION
  Report Type: 
  Country: None (occurrence: None)
  Receive Date: 20100709
  Receipt Date: 20100628
  Transmission Date: 20110219
  Serious: Yes (Hospitalization)
  Sender: FDA-Public Use
  Company Number: PHHY2010GB27926

PATIENT
  Sex: Female
  Weight: 36.7 kg

DRUGS (9)
  1. CLOZARIL [Suspect]
     Indication: SCHIZOPHRENIA
     Dosage: 100 MG, UNK
     Dates: start: 20091209
  2. CLOZARIL [Suspect]
     Dosage: 100 MG, UNK
     Route: 048
     Dates: start: 20100118, end: 20100418
  3. CLOZARIL [Suspect]
     Dosage: 100 MG, UNK
     Route: 048
     Dates: start: 20100422, end: 20100425
  4. CLOZARIL [Suspect]
     Dosage: 6.25 MG, QD
     Route: 048
     Dates: start: 20100426
  5. SIMVASTATIN [Concomitant]
     Dosage: 40 MG, UNK
     Route: 048
     Dates: start: 20090314
  6. HUMALOG [Concomitant]
     Indication: TYPE 1 DIABETES MELLITUS
     Dosage: 2 U, UNK
     Route: 058
     Dates: start: 20091216
  7. MIRTAZAPINE [Concomitant]
     Indication: DEPRESSED MOOD
     Dosage: 45 MG, UNK
     Route: 048
     Dates: start: 20100226
  8. LANSOPRAZOLE [Concomitant]
     Indication: VOMITING
     Dosage: 30 MG, UNK
     Route: 048
     Dates: start: 20100422
  9. PERINDOPRIL ERBUMINE [Concomitant]
     Indication: HYPERTENSION
     Dosage: 8 MG, UNK
     Route: 048
     Dates: start: 20100216, end: 20100424

REACTIONS (9)
  - DRUG DOSE OMISSION [None]
  - GASTROINTESTINAL HAEMORRHAGE [None]
  - HAEMATEMESIS [None]
  - HYPOTENSION [None]
  - INCORRECT DOSE ADMINISTERED [None]
  - MALAISE [None]
  - MUSCLE SPASMS [None]
  - SALIVARY HYPERSECRETION [None]
  - SOMNOLENCE [None]
